FAERS Safety Report 17019883 (Version 1)
Quarter: 2019Q4

REPORT INFORMATION
  Report Type: Spontaneous
  Country: GB (occurrence: GB)
  Receive Date: 20191112
  Receipt Date: 20191112
  Transmission Date: 20200122
  Serious: No
  Sender: FDA-Public Use
  Company Number: GB-ALKEM LABORATORIES LIMITED-GB-ALKEM-2019-07060

PATIENT
  Age: 64 Year
  Sex: Female
  Weight: 71 kg

DRUGS (15)
  1. TICAGRELOR. [Concomitant]
     Active Substance: TICAGRELOR
     Indication: ILL-DEFINED DISORDER
     Dosage: TAKE ONE TWICE DAILY
     Route: 065
     Dates: start: 20190124
  2. GABAPENTIN. [Concomitant]
     Active Substance: GABAPENTIN
     Indication: ILL-DEFINED DISORDER
     Dosage: TAKE ONE CAPSULE THREE TIMES DAILY
     Route: 065
     Dates: start: 20190424
  3. DIFFLAM [Concomitant]
     Active Substance: BENZYDAMINE HYDROCHLORIDE
     Indication: ILL-DEFINED DISORDER
     Dosage: USE EVERY 3 HRS
     Route: 065
     Dates: start: 20190211, end: 20190216
  4. OTOMIZE [Concomitant]
     Active Substance: DEXAMETHASONE\NEOMYCIN SULFATE
     Indication: ILL-DEFINED DISORDER
     Dosage: 1 SPRAY THREE TIMES A DAY IN AFFECTED EAR AS DI...
     Route: 065
     Dates: start: 20190306, end: 20190311
  5. PREGABALIN. [Suspect]
     Active Substance: PREGABALIN
     Indication: PRODUCT USED FOR UNKNOWN INDICATION
     Dosage: UNKNOWN
     Route: 065
     Dates: start: 20190409
  6. ACIDEX [Concomitant]
     Active Substance: CALCIUM CARBONATE\SODIUM ALGINATE\SODIUM BICARBONATE
     Indication: ILL-DEFINED DISORDER
     Dosage: 2X5ML SPOON 4 TIMES/DAY
     Route: 065
     Dates: start: 20190311, end: 20190323
  7. RANOLAZINE. [Concomitant]
     Active Substance: RANOLAZINE
     Indication: ILL-DEFINED DISORDER
     Dosage: TAKE ONE TWICE DAILY
     Route: 065
     Dates: start: 20190124
  8. CIPROFLOXACIN. [Concomitant]
     Active Substance: CIPROFLOXACIN
     Indication: ILL-DEFINED DISORDER
     Dosage: TAKE ONE TWICE DAILY (NOT WITH SIMVASTATIN)
     Route: 065
     Dates: start: 20190329, end: 20190405
  9. RANITIDINE. [Concomitant]
     Active Substance: RANITIDINE
     Indication: ILL-DEFINED DISORDER
     Dosage: TAKE ONE TWICE DAILY
     Route: 065
     Dates: start: 20190306, end: 20190405
  10. LOSARTAN. [Concomitant]
     Active Substance: LOSARTAN
     Indication: ILL-DEFINED DISORDER
     Dosage: TAKE ONE DAILY
     Route: 065
     Dates: start: 20190124
  11. SIMVASTATIN. [Concomitant]
     Active Substance: SIMVASTATIN
     Indication: ILL-DEFINED DISORDER
     Dosage: TAKE ONE AT NIGHT
     Route: 065
     Dates: start: 20190124
  12. PHENOXYMETHYLPENICILLIN [Concomitant]
     Active Substance: PENICILLIN V
     Indication: ILL-DEFINED DISORDER
     Dosage: TAKE ONE 4 TIMES/DAY
     Route: 065
     Dates: start: 20190311, end: 20190318
  13. EVACAL D3 CHEWABLE [Concomitant]
     Indication: ILL-DEFINED DISORDER
     Dosage: CHEW ONE TWICE DAILY
     Route: 065
     Dates: start: 20190124
  14. DOXYCYCLINE. [Concomitant]
     Active Substance: DOXYCYCLINE
     Indication: ILL-DEFINED DISORDER
     Dosage: TAKE 2 ONCE DAILY
     Route: 065
     Dates: start: 20190211, end: 20190216
  15. PARACETAMOL [Concomitant]
     Active Substance: ACETAMINOPHEN
     Indication: ILL-DEFINED DISORDER
     Dosage: TAKE 1 OR 2 4 TIMES/DAY
     Route: 065
     Dates: start: 20190311, end: 20190318

REACTIONS (1)
  - Somnolence [Recovered/Resolved]
